FAERS Safety Report 15707401 (Version 2)
Quarter: 2019Q2

REPORT INFORMATION
  Report Type: Report from Study
  Country: None (occurrence: US)
  Receive Date: 20181211
  Receipt Date: 20190424
  Transmission Date: 20190711
  Serious: Yes (Hospitalization, Other)
  Sender: FDA-Public Use
  Company Number: US-ABBVIE-18S-163-2583900-00

PATIENT
  Age: 76 Year
  Sex: Female
  Weight: 60.4 kg

DRUGS (2)
  1. CREON [Suspect]
     Active Substance: PANCRELIPASE AMYLASE\PANCRELIPASE LIPASE\PANCRELIPASE PROTEASE
     Dosage: 3 CAPSULES WITH MEALS?1 CAPSULE WITH SNACKS
     Route: 048
     Dates: start: 2018
  2. CREON [Suspect]
     Active Substance: PANCRELIPASE AMYLASE\PANCRELIPASE LIPASE\PANCRELIPASE PROTEASE
     Indication: PANCREATIC FAILURE
     Dosage: 2 CAPSULES WITH MEALS?1 CAPSULE WITH SNACKS
     Route: 048
     Dates: start: 20180806, end: 2018

REACTIONS (3)
  - Ductal adenocarcinoma of pancreas [Recovered/Resolved]
  - Surgery [Unknown]
  - Adenocarcinoma pancreas [Recovered/Resolved]

NARRATIVE: CASE EVENT DATE: 2018
